FAERS Safety Report 16951489 (Version 2)
Quarter: 2019Q4

REPORT INFORMATION
  Report Type: Spontaneous
  Country: GB (occurrence: GB)
  Receive Date: 20191023
  Receipt Date: 20191126
  Transmission Date: 20200122
  Serious: Yes (Hospitalization, Other)
  Sender: FDA-Public Use
  Company Number: GB-PFIZER INC-2019453514

PATIENT
  Sex: Female

DRUGS (16)
  1. SODIUM CHLORIDE. [Suspect]
     Active Substance: SODIUM CHLORIDE
     Indication: MEDICATION DILUTION
     Dosage: UNK
     Route: 065
  2. SODIUM CHLORIDE. [Suspect]
     Active Substance: SODIUM CHLORIDE
     Indication: TRIPLE NEGATIVE BREAST CANCER
     Dosage: UNK
  3. SODIUM CHLORIDE. [Suspect]
     Active Substance: SODIUM CHLORIDE
     Dosage: UNK
  4. ABRAXANE [Suspect]
     Active Substance: PACLITAXEL
     Dosage: UNK
  5. ATEZOLIZUMAB. [Suspect]
     Active Substance: ATEZOLIZUMAB
     Dosage: UNK
  6. ATEZOLIZUMAB. [Suspect]
     Active Substance: ATEZOLIZUMAB
     Indication: TRIPLE NEGATIVE BREAST CANCER
     Dosage: UNK
     Route: 042
     Dates: start: 20190815
  7. SODIUM CHLORIDE. [Suspect]
     Active Substance: SODIUM CHLORIDE
     Dosage: UNK
  8. ABRAXANE [Suspect]
     Active Substance: PACLITAXEL
     Dosage: 100MG, UNK
  9. OXYCODONE [Concomitant]
     Active Substance: OXYCODONE
     Indication: PAIN
     Dosage: 40 MG, 1X/DAY
     Route: 048
     Dates: start: 20190801
  10. GABAPENTIN. [Concomitant]
     Active Substance: GABAPENTIN
     Indication: PAIN
     Dosage: 900 MG, 1X/DAY
     Route: 048
     Dates: start: 20190801
  11. ABRAXANE [Suspect]
     Active Substance: PACLITAXEL
     Indication: TRIPLE NEGATIVE BREAST CANCER
     Dosage: 180 MG, UNK
     Route: 065
  12. ABRAXANE [Suspect]
     Active Substance: PACLITAXEL
     Indication: BREAST CANCER METASTATIC
     Dosage: 80MG, UNK
  13. ATEZOLIZUMAB. [Suspect]
     Active Substance: ATEZOLIZUMAB
     Indication: BREAST CANCER METASTATIC
     Dosage: UNK
  14. ATEZOLIZUMAB. [Suspect]
     Active Substance: ATEZOLIZUMAB
     Dosage: UNK
  15. OMEPRAZOLE. [Concomitant]
     Active Substance: OMEPRAZOLE
     Indication: GASTROOESOPHAGEAL REFLUX DISEASE
     Dosage: 20 MG, 1X/DAY
     Route: 048
     Dates: start: 20190801
  16. SODIUM CHLORIDE. [Suspect]
     Active Substance: SODIUM CHLORIDE
     Indication: BREAST CANCER METASTATIC
     Dosage: UNK

REACTIONS (5)
  - Tumour ulceration [Recovering/Resolving]
  - Pyrexia [Recovered/Resolved]
  - Infected neoplasm [Recovering/Resolving]
  - Breast neoplasm [Recovering/Resolving]
  - Acute kidney injury [Recovered/Resolved]

NARRATIVE: CASE EVENT DATE: 20190920
